FAERS Safety Report 9849733 (Version 1)
Quarter: 2013Q4

REPORT INFORMATION
  Report Type: Spontaneous
  Country: US (occurrence: None)
  Receive Date: 20131226
  Receipt Date: 20131226
  Transmission Date: 20140711
  Serious: Yes (Other)
  Sender: FDA-Public Use
  Company Number: PHEH2012US021942

PATIENT
  Sex: 0

DRUGS (1)
  1. ZOMETA [Suspect]
     Indication: METASTASES TO BONE
     Dosage: 1 DF, INTRAVENOUS
     Route: 042
     Dates: start: 201107

REACTIONS (1)
  - Bone pain [None]
